FAERS Safety Report 12888048 (Version 2)
Quarter: 2016Q4

REPORT INFORMATION
  Report Type: Spontaneous
  Country: CN (occurrence: CN)
  Receive Date: 20161027
  Receipt Date: 20161202
  Transmission Date: 20170207
  Serious: Yes (Other)
  Sender: FDA-Public Use
  Company Number: CN-SUN PHARMACEUTICAL INDUSTRIES LTD-2016R1-126338

PATIENT
  Age: 13 Year
  Sex: Male

DRUGS (2)
  1. PREDNISONE. [Suspect]
     Active Substance: PREDNISONE
     Indication: DERMATOMYOSITIS
     Dosage: 1.6 MG/KG, DAILY
     Route: 065
  2. PREDNISONE. [Suspect]
     Active Substance: PREDNISONE
     Indication: DERMATOMYOSITIS
     Dosage: UNK
     Route: 065

REACTIONS (7)
  - Hepatic steatosis [Recovered/Resolved]
  - Skin infection [Recovered/Resolved]
  - Diabetes mellitus [Recovered/Resolved]
  - Glaucoma [Not Recovered/Not Resolved]
  - Optic atrophy [Unknown]
  - Hyperlipidaemia [Recovered/Resolved]
  - Myopathy [Recovered/Resolved]
